FAERS Safety Report 5397540-8 (Version None)
Quarter: 2007Q3

REPORT INFORMATION
  Report Type: 
  Country: None (occurrence: None)
  Receive Date: 20070724
  Receipt Date: 20070724
  Transmission Date: 20080115
  Serious: Yes (Hospitalization)
  Sender: FDA-Public Use
  Company Number: None

PATIENT
  Age: 59 Year
  Sex: Male

DRUGS (10)
  1. ERTAPENEM [Suspect]
     Indication: CELLULITIS
     Dosage: 1 GRAM IV
     Route: 042
     Dates: start: 20060424, end: 20060425
  2. METAMUCIL [Concomitant]
  3. TRENTAL [Concomitant]
  4. TRIAMCINOLONE [Concomitant]
  5. PLAVIX [Concomitant]
  6. HYDROXYZINE [Concomitant]
  7. TYLENOL (CAPLET) [Concomitant]
  8. PREDNISONE [Concomitant]
  9. CLINDAMYCIN HCL [Concomitant]
  10. AQUAPHOR [Concomitant]

REACTIONS (2)
  - DERMATITIS EXFOLIATIVE [None]
  - DRUG HYPERSENSITIVITY [None]
